FAERS Safety Report 19065520 (Version 1)
Quarter: 2021Q1

REPORT INFORMATION
  Report Type: Spontaneous
  Country: US (occurrence: US)
  Receive Date: 20210327
  Receipt Date: 20210327
  Transmission Date: 20210420
  Serious: No
  Sender: FDA-Public Use
  Company Number: US-GLAXOSMITHKLINE-US2021069869

PATIENT
  Sex: Male

DRUGS (4)
  1. TRIAMCINOLONE [Suspect]
     Active Substance: TRIAMCINOLONE
     Indication: RASH
     Dosage: UNK
  2. HYDROXYZINE [Suspect]
     Active Substance: HYDROXYZINE HYDROCHLORIDE
     Indication: RASH
     Dosage: UNK
  3. LAMICTAL XR [Suspect]
     Active Substance: LAMOTRIGINE
     Indication: PRODUCT USED FOR UNKNOWN INDICATION
     Dosage: UNK
  4. XYZAL [Suspect]
     Active Substance: LEVOCETIRIZINE DIHYDROCHLORIDE
     Indication: RASH
     Dosage: UNK

REACTIONS (2)
  - Drug ineffective [Unknown]
  - Rash [Not Recovered/Not Resolved]
